FAERS Safety Report 5000284-5 (Version None)
Quarter: 2006Q2

REPORT INFORMATION
  Report Type: 
  Country: None (occurrence: None)
  Receive Date: 20060511
  Receipt Date: 20050310
  Transmission Date: 20061013
  Serious: Yes (Hospitalization, Disabling, Other)
  Sender: FDA-Public Use
  Company Number: US-MERCK-0503USA02049

PATIENT
  Age: 68 Year
  Sex: Female
  Weight: 72 kg

DRUGS (6)
  1. VIOXX [Suspect]
     Indication: ARTHRITIS
     Route: 048
     Dates: start: 20010101, end: 20020301
  2. NORVASC [Concomitant]
     Route: 065
  3. AUGMENTIN '125' [Concomitant]
     Route: 065
  4. PRILOSEC [Concomitant]
     Route: 048
  5. SYNTHROID [Concomitant]
     Route: 065
  6. ACCUPRIL [Concomitant]
     Route: 065

REACTIONS (17)
  - ANTIPHOSPHOLIPID ANTIBODIES [None]
  - ARTHROPATHY [None]
  - CONSTIPATION [None]
  - CORONARY ARTERY DISEASE [None]
  - FATIGUE [None]
  - FLUSHING [None]
  - HEADACHE [None]
  - HYPERCHOLESTEROLAEMIA [None]
  - HYPERTENSION [None]
  - MYOCARDIAL INFARCTION [None]
  - PANIC DISORDER [None]
  - PERIPHERAL COLDNESS [None]
  - RED BLOOD CELL SEDIMENTATION RATE INCREASED [None]
  - RETINAL VASCULAR DISORDER [None]
  - SILENT MYOCARDIAL INFARCTION [None]
  - SINUS BRADYCARDIA [None]
  - VISION BLURRED [None]
